FAERS Safety Report 25502622 (Version 1)
Quarter: 2025Q3

REPORT INFORMATION
  Report Type: Spontaneous
  Country: EU (occurrence: EU)
  Receive Date: 20250702
  Receipt Date: 20250702
  Transmission Date: 20251020
  Serious: Yes (Other)
  Sender: MERCK SHARP & DOHME LLC
  Company Number: None

PATIENT
  Sex: Female

DRUGS (1)
  1. INVANZ [Suspect]
     Active Substance: ERTAPENEM SODIUM
     Indication: Urinary tract infection
     Route: 058

REACTIONS (2)
  - Skin necrosis [Unknown]
  - Off label use [Unknown]
